FAERS Safety Report 9535882 (Version 1)
Quarter: 2013Q2

REPORT INFORMATION
  Report Type: Spontaneous
  Country: US (occurrence: None)
  Receive Date: 20130507
  Receipt Date: 20130507
  Transmission Date: 20140414
  Serious: No
  Sender: FDA-Public Use
  Company Number: PHEH2012US024802

PATIENT
  Sex: Female

DRUGS (7)
  1. AFINITOR (RAD) UNKNOWN [Suspect]
     Indication: TUBEROUS SCLEROSIS
     Route: 048
     Dates: start: 20110314
  2. AFINITOR (RAD) UNKNOWN [Suspect]
     Indication: BRAIN NEOPLASM BENIGN
     Route: 048
     Dates: start: 20110314
  3. DTAP (DIPHTHERIA VACCINE, PERTUSSIS VACCINE, TETANUS VACCINE) [Concomitant]
  4. SABRIL (VIGABATRIN) [Concomitant]
  5. AMLODIPINE (AMLODIPINE) [Concomitant]
  6. KEPPRA (LEVETIRACETAM) [Concomitant]
  7. FLECAINIDE (FLECAINIDE) [Concomitant]

REACTIONS (4)
  - Pyrexia [None]
  - Oral pain [None]
  - Lip pain [None]
  - Glossodynia [None]
